FAERS Safety Report 13757922 (Version 2)
Quarter: 2017Q4

REPORT INFORMATION
  Report Type: Report from Study
  Country: GB (occurrence: GB)
  Receive Date: 20170717
  Receipt Date: 20171122
  Transmission Date: 20180320
  Serious: Yes (Hospitalization, Other)
  Sender: FDA-Public Use
  Company Number: GB-ROCHE-1963348

PATIENT
  Age: 63 Year
  Sex: Male

DRUGS (7)
  1. ALLOPURINOL. [Concomitant]
     Active Substance: ALLOPURINOL
     Route: 065
  2. RITUXIMAB. [Suspect]
     Active Substance: RITUXIMAB
     Indication: CHRONIC LYMPHOCYTIC LEUKAEMIA
     Dosage: DAY 1 OF CYCLE 1?MOST RECENT DOSE ON 23/MAR/2011 BEFORE DEVELOPING URTI: 100 MG
     Route: 042
     Dates: start: 20110323
  3. MITOXANTRONE [Suspect]
     Active Substance: MITOXANTRONE HYDROCHLORIDE
     Indication: CHRONIC LYMPHOCYTIC LEUKAEMIA
     Dosage: DAY 1?MOST RECENT DOSE ON 23/MAR/2011 BEFORE DEVELOPING URTI: 11 MG?MOST RECENT DOSE ON 20/APR/2011
     Route: 042
     Dates: start: 20110323
  4. FLUDARABINE [Suspect]
     Active Substance: FLUDARABINE PHOSPHATE
     Indication: CHRONIC LYMPHOCYTIC LEUKAEMIA
     Dosage: FOR 5 DAYS; DAYS 1-5?MOST RECENT DOSE ON 28/MAR/2011 BEFORE DEVELOPING URTI: 40 MG?MOST RECENT DOSE
     Route: 048
     Dates: start: 20110323
  5. CYCLOPHOSPHAMIDE. [Suspect]
     Active Substance: CYCLOPHOSPHAMIDE
     Indication: CHRONIC LYMPHOCYTIC LEUKAEMIA
     Dosage: FOR 5 DAYS; DAYS 1-5?MOST RECENT DOSE ON 28/MAR/2011 BEFORE DEVELOPING URTI: 300 MG?MOST RECENT DOSE
     Route: 048
     Dates: start: 20110323
  6. RITUXIMAB. [Suspect]
     Active Substance: RITUXIMAB
     Dosage: MOST RECENT DOSE ON 20/APR/2011 BEFORE DEVELOPING PYREXIA: 100 MG
     Route: 042
     Dates: start: 20110420
  7. ACYCLOVIR. [Concomitant]
     Active Substance: ACYCLOVIR
     Indication: INFECTION PROPHYLAXIS
     Route: 065

REACTIONS (6)
  - Upper respiratory tract infection [Recovered/Resolved]
  - Rash macular [Recovered/Resolved]
  - Neutropenia [Unknown]
  - Anaemia [Recovered/Resolved]
  - Rash papular [Recovered/Resolved]
  - Pyrexia [Recovered/Resolved]

NARRATIVE: CASE EVENT DATE: 20110426
